FAERS Safety Report 7389334-9 (Version None)
Quarter: 2011Q2

REPORT INFORMATION
  Report Type: 
  Country: None (occurrence: None)
  Receive Date: 20110401
  Receipt Date: 20110325
  Transmission Date: 20111010
  Serious: Yes (Death, Hospitalization)
  Sender: FDA-Public Use
  Company Number: A0920085A

PATIENT
  Age: 65 Year
  Sex: Male

DRUGS (4)
  1. COUMADIN [Concomitant]
  2. TEGRETOL [Concomitant]
  3. VENTOLIN [Concomitant]
  4. ADVAIR DISKUS 100/50 [Suspect]
     Indication: EMPHYSEMA
     Dosage: 1PUFF TWICE PER DAY
     Route: 055
     Dates: start: 20050101

REACTIONS (1)
  - EMPHYSEMA [None]
